FAERS Safety Report 6881430-5 (Version None)
Quarter: 2010Q3

REPORT INFORMATION
  Report Type: 
  Country: None (occurrence: None)
  Receive Date: 20100728
  Receipt Date: 20100728
  Transmission Date: 20110219
  Serious: Yes (Other)
  Sender: FDA-Public Use
  Company Number: None

PATIENT
  Age: 2 Year
  Sex: Male
  Weight: 10.7 kg

DRUGS (2)
  1. ETOPOSIDE [Suspect]
     Indication: NEUROBLASTOMA
     Dosage: 69MG Q24H IV
     Route: 042
     Dates: start: 20100714, end: 20100716
  2. CISPLATIN [Concomitant]

REACTIONS (3)
  - COUGH [None]
  - DYSGEUSIA [None]
  - RASH [None]
